FAERS Safety Report 8460577-6 (Version None)
Quarter: 2012Q2

REPORT INFORMATION
  Report Type: 
  Country: None (occurrence: None)
  Receive Date: 20120622
  Receipt Date: 20120412
  Transmission Date: 20120825
  Serious: No
  Sender: FDA-Public Use
  Company Number: US-ASTRAZENECA-2012SE24630

PATIENT
  Age: 62 Year
  Sex: Female

DRUGS (4)
  1. PLAVIX [Concomitant]
     Indication: ACUTE CORONARY SYNDROME
  2. BETA-BLOCKER [Concomitant]
     Indication: ACUTE CORONARY SYNDROME
  3. CALCIUM CHANNEL BLOCKER [Concomitant]
     Indication: ACUTE CORONARY SYNDROME
  4. BRILINTA [Suspect]
     Indication: ACUTE CORONARY SYNDROME
     Route: 048
     Dates: start: 20120301

REACTIONS (1)
  - HYPERSENSITIVITY [None]
